FAERS Safety Report 8057056-7 (Version None)
Quarter: 2012Q1

REPORT INFORMATION
  Report Type: 
  Country: None (occurrence: None)
  Receive Date: 20120119
  Receipt Date: 20120112
  Transmission Date: 20120608
  Serious: Yes (Other)
  Sender: FDA-Public Use
  Company Number: US-US-EMD SERONO, INC.-7091775

PATIENT
  Sex: Female
  Weight: 66 kg

DRUGS (13)
  1. NAPROXEN (ALEVE) [Concomitant]
     Indication: PREMEDICATION
  2. GABAPENTIN [Concomitant]
     Route: 046
  3. LEVOXYL [Concomitant]
  4. CYCLOBENZAPRINE [Concomitant]
     Route: 048
  5. LISINOPRIL [Concomitant]
     Route: 048
  6. PROVIGIL [Concomitant]
     Route: 048
  7. REBIF [Suspect]
     Indication: RELAPSING-REMITTING MULTIPLE SCLEROSIS
     Route: 058
     Dates: start: 20091012, end: 20110101
  8. REBIF [Suspect]
     Route: 058
     Dates: start: 20110101
  9. TIZANIDINE HCL [Concomitant]
     Route: 048
  10. TRAZODONE HCL [Concomitant]
  11. ESTRADERM [Concomitant]
  12. METHYLPHENIDATE [Concomitant]
  13. PROVIGIL [Concomitant]
     Route: 048

REACTIONS (4)
  - HAEMORRHOIDS [None]
  - INJECTION SITE PAIN [None]
  - DIVERTICULITIS [None]
  - CENTRAL NERVOUS SYSTEM LESION [None]
